FAERS Safety Report 6971728-4 (Version None)
Quarter: 2010Q3

REPORT INFORMATION
  Report Type: 
  Country: None (occurrence: None)
  Receive Date: 20100903
  Receipt Date: 20100826
  Transmission Date: 20110219
  Serious: Yes (Hospitalization)
  Sender: FDA-Public Use
  Company Number: 2010MA002044

PATIENT
  Age: 71 Year
  Sex: Female

DRUGS (10)
  1. SERTRALINE HYDROCHLORIDE TABLETS, 50 MG (BASE) (AELLC) (SERTRALINE) [Suspect]
     Indication: DEPRESSION
     Dosage: 50 MG; QD
     Dates: start: 20070917, end: 20071001
  2. DIAZEPAM [Concomitant]
  3. AMISULPRIDE [Concomitant]
  4. NICERGOLINE [Concomitant]
  5. AMLODIPINE [Concomitant]
  6. ASPIRIN [Concomitant]
  7. ACID [Concomitant]
  8. CANDEARTAN [Concomitant]
  9. ATENOLOL [Concomitant]
  10. PREV MEDS [Concomitant]

REACTIONS (5)
  - ASPARTATE AMINOTRANSFERASE INCREASED [None]
  - CARDIAC MURMUR [None]
  - PALLOR [None]
  - PULSE ABNORMAL [None]
  - RHABDOMYOLYSIS [None]
